FAERS Safety Report 10446224 (Version 7)
Quarter: 2015Q4

REPORT INFORMATION
  Report Type: Report from Study
  Country: HU (occurrence: HU)
  Receive Date: 20140911
  Receipt Date: 20151009
  Transmission Date: 20160304
  Serious: Yes (Death, Hospitalization, Disabling)
  Sender: FDA-Public Use
  Company Number: HU-ROCHE-1071710

PATIENT
  Age: 81 Year
  Sex: Female
  Weight: 46 kg

DRUGS (38)
  1. FUROSEMIDE. [Concomitant]
     Active Substance: FUROSEMIDE
     Indication: FLUID RETENTION
     Dosage: 1X40 MG
     Route: 065
     Dates: start: 20120410, end: 20120716
  2. FUROSEMIDE. [Concomitant]
     Active Substance: FUROSEMIDE
     Route: 065
     Dates: start: 20120720
  3. DIMETINDENE [Concomitant]
     Active Substance: DIMETHINDENE
     Dosage: 1X4 MG
     Route: 065
     Dates: start: 20120530, end: 20120530
  4. DIMETINDENE [Concomitant]
     Active Substance: DIMETHINDENE
     Dosage: 1X 4MG
     Route: 065
     Dates: start: 20120509, end: 20120509
  5. FAMOTIDINE. [Concomitant]
     Active Substance: FAMOTIDINE
     Dosage: 2X40 MG
     Route: 065
     Dates: start: 20120620, end: 20120625
  6. MOXIFLOXACIN. [Concomitant]
     Active Substance: MOXIFLOXACIN
     Indication: DIARRHOEA
     Dosage: 1X400 MG
     Route: 065
     Dates: start: 20120711, end: 20120717
  7. METRONIDAZOLE. [Concomitant]
     Active Substance: METRONIDAZOLE
     Indication: DIARRHOEA
     Route: 065
     Dates: start: 20120711, end: 20120720
  8. AMOXICILLIN/CLAVULANIC ACID [Concomitant]
     Active Substance: AMOXICILLIN\CLAVULANIC ACID
     Indication: PNEUMONIA
     Dosage: 2X 1000MG
     Route: 065
     Dates: start: 20120410, end: 20120504
  9. PREDNISOLONE. [Suspect]
     Active Substance: PREDNISOLONE
     Dosage: 1X100 MG
     Route: 048
     Dates: start: 20120616, end: 20120616
  10. ALLOPURINOL. [Concomitant]
     Active Substance: ALLOPURINOL
     Indication: HYPERURICAEMIA
     Dosage: 2X100
     Route: 065
     Dates: start: 20120410
  11. PARACETAMOLUM [Concomitant]
     Route: 065
     Dates: start: 20120516, end: 20120516
  12. DIMETINDENE [Concomitant]
     Active Substance: DIMETHINDENE
     Route: 065
     Dates: start: 20120716, end: 20120716
  13. DIMETINDENE [Concomitant]
     Active Substance: DIMETHINDENE
     Dosage: 1X 4MG
     Route: 065
     Dates: start: 20120516, end: 20120516
  14. FAMOTIDINE. [Concomitant]
     Active Substance: FAMOTIDINE
     Dosage: 1X40 MG
     Route: 065
     Dates: start: 20120523, end: 20120529
  15. DOXORUBICIN [Suspect]
     Active Substance: DOXORUBICIN
     Indication: DIFFUSE LARGE B-CELL LYMPHOMA
     Dosage: DOSE OF LAST DOXORUBICIN TAKEN : 68.5 MG, DATE OF MOST RECENT DOSE OF DOXORUBICIN: 16/JUL/2012
     Route: 042
     Dates: start: 20120509
  16. PREDNISOLONE. [Suspect]
     Active Substance: PREDNISOLONE
     Indication: DIFFUSE LARGE B-CELL LYMPHOMA
     Dosage: DOSE OF LAST PREDNISOLONE : 100 MG, DATE OF MOST RECENT DOSE PREDNISOLONE : 13/MAY/2012 AND 20/JUL/2
     Route: 048
     Dates: start: 20120509
  17. CITROKALCIUM [Concomitant]
     Indication: OSTEOPOROSIS
     Dosage: 2X600 MG
     Route: 065
     Dates: start: 20020110
  18. PARACETAMOLUM [Concomitant]
     Route: 065
     Dates: start: 20120716, end: 20120716
  19. FAMOTIDINE. [Concomitant]
     Active Substance: FAMOTIDINE
     Route: 065
     Dates: start: 20120716, end: 20120720
  20. FAMOTIDINE. [Concomitant]
     Active Substance: FAMOTIDINE
     Indication: ULCER
     Dosage: 2X40 MG
     Route: 065
     Dates: start: 20120530, end: 20120604
  21. OBINUTUZUMAB [Suspect]
     Active Substance: OBINUTUZUMAB
     Indication: DIFFUSE LARGE B-CELL LYMPHOMA
     Dosage: VOLUME OF LAST OBINUTUZUMAB : 250 ML, DOSE CONCENTRATION OF LAST OBINUTUZUMAB : 1000MG/ML, MOST RECE
     Route: 042
     Dates: start: 20120509
  22. CYCLOPHOSPHAMIDE. [Suspect]
     Active Substance: CYCLOPHOSPHAMIDE
     Indication: DIFFUSE LARGE B-CELL LYMPHOMA
     Dosage: DOSE OF LAST CYCLOPHOSPHAMIDE : 1027.5 MG, DATE OF MOST RECENT DOSE PRIOR TO SAE : 16/JUL/2012
     Route: 042
     Dates: start: 20120509
  23. PREDNISOLONE. [Suspect]
     Active Substance: PREDNISOLONE
     Dosage: 1X 100MG
     Route: 048
     Dates: start: 20120516, end: 20120516
  24. KALIUM CHLORATUM [Concomitant]
     Active Substance: POTASSIUM CHLORIDE
     Indication: FLUID RETENTION
     Dosage: 2X600 MG
     Route: 065
     Dates: start: 20120410, end: 20120716
  25. VINCRISTINE [Suspect]
     Active Substance: VINCRISTINE
     Indication: DIFFUSE LARGE B-CELL LYMPHOMA
     Dosage: INTRAVENOUS PUSH, DOSE OF LAST VINCRISTINE TAKEN : 1.5 MG, DATE OF MOST RECENT DOSE PRIOR TO SAE : 1
     Route: 040
     Dates: start: 20120509
  26. KALIUM CHLORATUM [Concomitant]
     Active Substance: POTASSIUM CHLORIDE
     Dosage: 2X600 MG
     Route: 065
     Dates: start: 20120620, end: 20120624
  27. KALIUM CHLORATUM [Concomitant]
     Active Substance: POTASSIUM CHLORIDE
     Dosage: 1X600 MG
     Route: 065
     Dates: start: 20120716, end: 20120720
  28. DIMETINDENE [Concomitant]
     Active Substance: DIMETHINDENE
     Dosage: 1X4 MG
     Route: 065
     Dates: start: 20120620, end: 20120620
  29. FAMOTIDINE. [Concomitant]
     Active Substance: FAMOTIDINE
     Route: 065
     Dates: start: 20120523, end: 20120529
  30. ACICLOVIR [Concomitant]
     Active Substance: ACYCLOVIR
     Indication: FEBRILE NEUTROPENIA
     Dosage: 5X400 MG
     Route: 065
     Dates: start: 20120525, end: 20120529
  31. ENOXAPARIN [Concomitant]
     Active Substance: ENOXAPARIN
     Indication: THROMBOSIS PROPHYLAXIS
     Dosage: 1X 40MG
     Route: 065
     Dates: start: 20120509, end: 20120516
  32. PARACETAMOLUM [Concomitant]
     Dosage: 1X1000MG
     Route: 065
     Dates: start: 20120509, end: 20120509
  33. KALIUM CHLORATUM [Concomitant]
     Active Substance: POTASSIUM CHLORIDE
     Indication: HYPOKALAEMIA
     Dosage: 2X600 MG
     Route: 065
     Dates: start: 20120530, end: 20120603
  34. KALIUM CHLORATUM [Concomitant]
     Active Substance: POTASSIUM CHLORIDE
     Route: 065
     Dates: start: 20120509, end: 20120513
  35. PARACETAMOLUM [Concomitant]
     Dosage: 1X1000 MG
     Route: 065
     Dates: start: 20120530, end: 20120530
  36. FAMOTIDINE. [Concomitant]
     Active Substance: FAMOTIDINE
     Dosage: 2X40MG
     Route: 065
     Dates: start: 20120120, end: 20120625
  37. MEROPENEM. [Concomitant]
     Active Substance: MEROPENEM
     Indication: FEBRILE NEUTROPENIA
     Dosage: 3X1 GR. IV
     Route: 065
     Dates: start: 20120523, end: 20120529
  38. FLUCONAZOLE. [Concomitant]
     Active Substance: FLUCONAZOLE
     Indication: FEBRILE NEUTROPENIA
     Dosage: 1X200 MG
     Route: 065
     Dates: start: 20120525, end: 20120529

REACTIONS (2)
  - Febrile neutropenia [Recovered/Resolved]
  - Septic shock [Fatal]

NARRATIVE: CASE EVENT DATE: 20120523
